FAERS Safety Report 6897930-8 (Version None)
Quarter: 2010Q3

REPORT INFORMATION
  Report Type: 
  Country: None (occurrence: None)
  Receive Date: 20100802
  Receipt Date: 20070816
  Transmission Date: 20110219
  Serious: No
  Sender: FDA-Public Use
  Company Number: US-PFIZER INC-2007068520

PATIENT
  Sex: Female
  Weight: 57.3 kg

DRUGS (4)
  1. LYRICA [Suspect]
     Indication: FIBROMYALGIA
     Dates: start: 20070701, end: 20070801
  2. DOXYCYCLINE [Concomitant]
     Indication: ACNE
  3. YASMIN [Concomitant]
  4. NAPROXEN [Concomitant]

REACTIONS (1)
  - RASH [None]
